FAERS Safety Report 4668645-1 (Version None)
Quarter: 2005Q2

REPORT INFORMATION
  Report Type: 
  Country: None (occurrence: None)
  Receive Date: 20050518
  Receipt Date: 20050429
  Transmission Date: 20051028
  Serious: Yes (Other)
  Sender: FDA-Public Use
  Company Number: A0556337A

PATIENT
  Age: 32 Year
  Sex: Female

DRUGS (2)
  1. PAXIL CR [Suspect]
     Indication: PANIC DISORDER
     Dosage: 25 MG/ PER ORAL/ ORAL
     Route: 048
     Dates: start: 20040801, end: 20050401
  2. BUPROPION HCL [Suspect]
     Dosage: 300 MG/ ORAL
     Route: 048
     Dates: start: 20040701, end: 20040701

REACTIONS (8)
  - CONDITION AGGRAVATED [None]
  - DIZZINESS [None]
  - DRUG WITHDRAWAL SYNDROME [None]
  - HEART RATE INCREASED [None]
  - HYPERHIDROSIS [None]
  - NIGHT SWEATS [None]
  - PARAESTHESIA [None]
  - PSORIASIS [None]
